FAERS Safety Report 25859866 (Version 1)
Quarter: 2025Q3

REPORT INFORMATION
  Report Type: Spontaneous
  Country: CN (occurrence: CN)
  Receive Date: 20250929
  Receipt Date: 20250929
  Transmission Date: 20251021
  Serious: Yes (Life-Threatening, Hospitalization)
  Sender: MERCK SHARP & DOHME LLC
  Company Number: CN-009507513-2333439

PATIENT
  Age: 57 Year
  Sex: Female
  Weight: 65 kg

DRUGS (6)
  1. KEYTRUDA [Suspect]
     Active Substance: PEMBROLIZUMAB
     Indication: Gallbladder cancer
     Dosage: 200 MG, 1 TIME/DAY (ONCE)
     Route: 041
     Dates: start: 20250829, end: 20250829
  2. PACLITAXEL [Suspect]
     Active Substance: PACLITAXEL
     Indication: Gallbladder cancer
     Dosage: 200 MG, 1 TIME/DAY (ONCE)
     Route: 041
     Dates: start: 20250829, end: 20250829
  3. SODIUM CHLORIDE [Concomitant]
     Active Substance: SODIUM CHLORIDE
     Indication: Medication dilution
     Dosage: 100 ML, 1 TIME/DAY (ONCE)
     Route: 041
     Dates: start: 20250829, end: 20250829
  4. SODIUM CHLORIDE [Concomitant]
     Active Substance: SODIUM CHLORIDE
     Indication: Medication dilution
     Dosage: 100 ML, 1 TIME/DAY (ONCE)
     Route: 041
     Dates: start: 20250829, end: 20250829
  5. CELECOXIB [Suspect]
     Active Substance: CELECOXIB
     Indication: Pain
     Dosage: 0.2 G, 2 TIMES/DAY
     Route: 048
     Dates: start: 20250829, end: 20250901
  6. TEGAFUR [Suspect]
     Active Substance: TEGAFUR
     Indication: Gallbladder cancer
     Dosage: 60 MG, 2 TIMES/DAY (BID)
     Route: 048
     Dates: start: 20250829, end: 20250912

REACTIONS (13)
  - Temperature intolerance [Recovered/Resolved]
  - Urticaria [Recovering/Resolving]
  - White blood cell count decreased [Recovering/Resolving]
  - Febrile neutropenia [Recovering/Resolving]
  - Mouth ulceration [Recovering/Resolving]
  - Oropharyngeal pain [Recovering/Resolving]
  - Platelet count decreased [Recovering/Resolving]
  - Asthenia [Recovering/Resolving]
  - Upper gastrointestinal haemorrhage [Recovering/Resolving]
  - Decreased appetite [Recovering/Resolving]
  - Nausea [Recovered/Resolved]
  - Product use issue [Unknown]
  - Abdominal pain [Recovering/Resolving]

NARRATIVE: CASE EVENT DATE: 20250829
